FAERS Safety Report 8946883 (Version 2)
Quarter: 2012Q4

REPORT INFORMATION
  Report Type: 
  Country: JP (occurrence: JP)
  Receive Date: 20121205
  Receipt Date: 20121217
  Transmission Date: 20130627
  Serious: Yes (Other)
  Sender: FDA-Public Use
  Company Number: JP-GLAXOSMITHKLINE-B0846034A

PATIENT
  Age: 51 Year
  Sex: Female

DRUGS (8)
  1. VALTREX [Suspect]
     Indication: HERPES ZOSTER
     Dosage: 1000MG Three times per day
     Route: 048
     Dates: start: 20121112, end: 20121116
  2. GENINAX [Suspect]
     Indication: PRODUCT USED FOR UNKNOWN INDICATION
     Route: 048
  3. PREDONINE [Concomitant]
     Indication: SUDDEN HEARING LOSS
     Dosage: 10MG Three times per day
     Route: 048
     Dates: start: 20121112, end: 20121116
  4. PREDONINE [Concomitant]
     Indication: SUDDEN HEARING LOSS
     Dosage: 10MG Twice per day
     Route: 048
     Dates: start: 20121116, end: 20121119
  5. ADETPHOS [Concomitant]
     Indication: SUDDEN HEARING LOSS
     Dosage: 1G Three times per day
     Route: 048
     Dates: start: 20121112, end: 20121116
  6. METHYCOBAL [Concomitant]
     Dosage: 500MCG Three times per day
     Route: 048
     Dates: start: 20121112, end: 20121116
  7. LOXONIN [Concomitant]
     Route: 048
  8. SELBEX [Concomitant]
     Route: 048

REACTIONS (3)
  - Pneumonia mycoplasmal [Recovered/Resolved]
  - Flushing [Recovered/Resolved]
  - Diarrhoea [Not Recovered/Not Resolved]
